FAERS Safety Report 9305365 (Version 1)
Quarter: 2013Q2

REPORT INFORMATION
  Report Type: Spontaneous
  Country: GB (occurrence: GB)
  Receive Date: 20130523
  Receipt Date: 20130523
  Transmission Date: 20140414
  Serious: Yes (Hospitalization, Other)
  Sender: FDA-Public Use
  Company Number: GB-UCBSA-086140

PATIENT
  Age: 36 Year
  Sex: Female
  Weight: 79.37 kg

DRUGS (4)
  1. CO-CODAMOL [Suspect]
     Indication: BACK PAIN
  2. CO-CODAMOL [Suspect]
     Indication: BACK PAIN
     Dosage: DOSE: 1DF
     Route: 048
     Dates: start: 20120517, end: 20120517
  3. BECONASE [Concomitant]
  4. PULMICORT [Concomitant]

REACTIONS (3)
  - Pancreatitis acute [Recovered/Resolved with Sequelae]
  - Respiratory distress [Recovered/Resolved]
  - Adverse drug reaction [Unknown]
